FAERS Safety Report 6058903-0 (Version None)
Quarter: 2009Q1

REPORT INFORMATION
  Report Type: 
  Country: None (occurrence: None)
  Receive Date: 20090130
  Receipt Date: 20090116
  Transmission Date: 20090719
  Serious: Yes (Death, Hospitalization)
  Sender: FDA-Public Use
  Company Number: FR-BRISTOL-MYERS SQUIBB COMPANY-14477236

PATIENT
  Age: 72 Year
  Sex: Female

DRUGS (14)
  1. GLUCOPHAGE [Suspect]
     Indication: DIABETES MELLITUS
     Dosage: 850MG
     Route: 048
     Dates: end: 20081027
  2. MEDIATOR [Concomitant]
     Indication: DIABETIC DIET
  3. INSULATARD [Concomitant]
     Indication: DIABETES MELLITUS
     Route: 058
  4. KARDEGIC [Concomitant]
     Route: 048
  5. COAPROVEL [Concomitant]
     Indication: HYPERTENSION
     Route: 048
     Dates: end: 20081027
  6. PROPOFAN [Concomitant]
     Indication: PAIN
     Route: 048
     Dates: end: 20081027
  7. MEPRONIZINE [Concomitant]
     Indication: INSOMNIA
     Route: 048
     Dates: end: 20081027
  8. NEXIUM [Concomitant]
     Route: 048
     Dates: end: 20081027
  9. SELOKEN [Concomitant]
     Route: 046
     Dates: end: 20081027
  10. FUROSEMIDE [Concomitant]
     Route: 048
     Dates: end: 20081027
  11. FRACTAL [Concomitant]
     Route: 048
     Dates: end: 20081027
  12. SEROPLEX [Concomitant]
     Indication: DEPRESSION
     Route: 048
     Dates: end: 20081027
  13. PRAZEPAM [Concomitant]
     Indication: DEPRESSION
     Route: 048
     Dates: end: 20081027
  14. ISKEDYL [Concomitant]
     Route: 048
     Dates: end: 20081027

REACTIONS (2)
  - METABOLIC ACIDOSIS [None]
  - RENAL FAILURE ACUTE [None]
